FAERS Safety Report 9447551 (Version 3)
Quarter: 2013Q4

REPORT INFORMATION
  Report Type: Spontaneous
  Country: JP (occurrence: JP)
  Receive Date: 20130808
  Receipt Date: 20131023
  Transmission Date: 20140711
  Serious: Yes (Hospitalization)
  Sender: FDA-Public Use
  Company Number: JP-ROCHE-1259327

PATIENT
  Sex: Female
  Weight: 56 kg

DRUGS (8)
  1. MIRCERA [Suspect]
     Indication: NEPHROGENIC ANAEMIA
     Route: 042
     Dates: start: 20130613, end: 20130627
  2. MIRCERA [Suspect]
     Indication: NEPHROGENIC ANAEMIA
     Route: 042
     Dates: start: 20130704, end: 20130725
  3. RENAGEL [Concomitant]
     Indication: HYPERPHOSPHATAEMIA
     Route: 048
  4. ARTIST [Concomitant]
     Indication: HYPERTENSION
     Route: 048
  5. LANSOPRAZOLE [Concomitant]
     Indication: OESOPHAGEAL ULCER
     Route: 048
  6. SENNOSIDE [Concomitant]
     Indication: CONSTIPATION
     Route: 048
  7. CINACALCET HYDROCHLORIDE [Concomitant]
     Route: 048
  8. OLMETEC [Concomitant]
     Dosage: MORNING AND EVENING
     Route: 048

REACTIONS (1)
  - Anaemia [Unknown]
